FAERS Safety Report 6143829-4 (Version None)
Quarter: 2009Q2

REPORT INFORMATION
  Report Type: 
  Country: None (occurrence: None)
  Receive Date: 20090403
  Receipt Date: 20090331
  Transmission Date: 20091009
  Serious: Yes (Death, Other)
  Sender: FDA-Public Use
  Company Number: PHHY2009JP12273

PATIENT
  Age: 50 Year
  Sex: Female

DRUGS (4)
  1. GLEEVEC [Suspect]
     Indication: LEUKAEMIA
     Dosage: 200MG
     Route: 048
  2. GLEEVEC [Suspect]
     Dosage: 400MG
     Route: 048
  3. GLEEVEC [Suspect]
     Dosage: 100MG
     Route: 048
  4. GLEEVEC [Suspect]
     Dosage: 400MG
     Route: 048

REACTIONS (6)
  - CEREBRAL INFARCTION [None]
  - CHRONIC LYMPHOCYTIC LEUKAEMIA TRANSFORMATION [None]
  - DEATH [None]
  - PNEUMONIA [None]
  - SUBDURAL HAEMATOMA [None]
  - SUBDURAL HAEMATOMA EVACUATION [None]
